FAERS Safety Report 10767537 (Version 3)
Quarter: 2015Q2

REPORT INFORMATION
  Report Type: Spontaneous
  Country: US (occurrence: US)
  Receive Date: 20150205
  Receipt Date: 20150512
  Transmission Date: 20150821
  Serious: No
  Sender: FDA-Public Use
  Company Number: US-PFIZER INC-2015046995

PATIENT
  Sex: Female

DRUGS (3)
  1. OXYBUTYNIN [Suspect]
     Active Substance: OXYBUTYNIN
     Indication: POLYURIA
     Dosage: 10 MG, 1X/DAY
     Dates: start: 2014
  2. FESOTERODINE [Suspect]
     Active Substance: FESOTERODINE
     Dosage: UNK
  3. ENABLEX [Suspect]
     Active Substance: DARIFENACIN\DARIFENACIN HYDROBROMIDE
     Indication: POLYURIA
     Dosage: 7.5 MG, 1X/DAY
     Dates: start: 2015

REACTIONS (2)
  - Dry mouth [Not Recovered/Not Resolved]
  - Dry skin [Not Recovered/Not Resolved]

NARRATIVE: CASE EVENT DATE: 2014
